FAERS Safety Report 8553779-1 (Version None)
Quarter: 2012Q3

REPORT INFORMATION
  Report Type: 
  Country: None (occurrence: None)
  Receive Date: 20120731
  Receipt Date: 20120723
  Transmission Date: 20120928
  Serious: Yes (Other)
  Sender: FDA-Public Use
  Company Number: FR-GLAXOSMITHKLINE-B0819064A

PATIENT
  Sex: Male

DRUGS (7)
  1. DILTIAZEM [Concomitant]
  2. FENOFIBRATE [Concomitant]
     Dates: start: 20060301
  3. PENTOXIFYLLINE [Concomitant]
  4. OMACOR [Suspect]
     Indication: PRODUCT USED FOR UNKNOWN INDICATION
     Dosage: 1000MG PER DAY
     Route: 048
     Dates: start: 20040720, end: 20100317
  5. ACENOCOUMAROL [Suspect]
     Indication: PROPHYLAXIS
     Route: 065
     Dates: start: 20090501
  6. VALSARTAN [Concomitant]
     Dates: start: 20090301
  7. SIMVASTATIN [Concomitant]
     Dates: start: 20060301

REACTIONS (1)
  - UPPER GASTROINTESTINAL HAEMORRHAGE [None]
